FAERS Safety Report 14323623 (Version 2)
Quarter: 2018Q1

REPORT INFORMATION
  Report Type: Spontaneous
  Country: FR (occurrence: FR)
  Receive Date: 20171226
  Receipt Date: 20180112
  Transmission Date: 20180509
  Serious: Yes (Life-Threatening)
  Sender: FDA-Public Use
  Company Number: FR-CONCORDIA PHARMACEUTICALS INC.-E2B_00008977

PATIENT
  Age: 13 Year
  Sex: Female
  Weight: 35 kg

DRUGS (11)
  1. PREDNISOLONE. [Suspect]
     Active Substance: PREDNISOLONE
     Indication: B-CELL LYMPHOMA
     Route: 048
     Dates: start: 20170802, end: 20170907
  2. MABTHERA [Suspect]
     Active Substance: RITUXIMAB
     Indication: B-CELL LYMPHOMA
     Route: 041
     Dates: start: 20170807, end: 20171020
  3. ETOPOSIDE MYLAN 20 MG/ML, SOLUTION TO BE DILUTED FOR INFUSION [Suspect]
     Active Substance: ETOPOSIDE
     Indication: B-CELL LYMPHOMA
     Route: 041
     Dates: start: 20171003, end: 20171024
  4. HYDROCORTISONE UPJOHN [Suspect]
     Active Substance: HYDROCORTISONE
     Indication: B-CELL LYMPHOMA
     Route: 037
     Dates: start: 20170803, end: 20171020
  5. VINCRISTINE SANDOZ 1 MG/ML, SOLUTION FOR INJECTION [Suspect]
     Active Substance: VINCRISTINE
     Indication: B-CELL LYMPHOMA
     Route: 041
     Dates: start: 20170802, end: 20170831
  6. DOXORUBICINE (CHLORHYDRATE DE) [Suspect]
     Active Substance: DOXORUBICIN
     Indication: B-CELL LYMPHOMA
     Route: 041
     Dates: start: 20170810, end: 20170901
  7. METHOTREXATE MYLAN [Suspect]
     Active Substance: METHOTREXATE SODIUM
     Indication: B-CELL LYMPHOMA
     Route: 041
     Dates: start: 20170809, end: 20170831
  8. ENDOXAN [Suspect]
     Active Substance: CYCLOPHOSPHAMIDE
     Indication: B-CELL LYMPHOMA
     Route: 041
     Dates: start: 20170802, end: 20170903
  9. CYTARABINE SANDOZ 100 MG/ML, SOLUTION FOR INJECTION [Suspect]
     Active Substance: CYTARABINE
     Indication: B-CELL LYMPHOMA
     Route: 041
     Dates: start: 20171003, end: 20171024
  10. LEDERTREXATE [Suspect]
     Active Substance: METHOTREXATE
     Indication: B-CELL LYMPHOMA
     Route: 037
     Dates: start: 20170803, end: 20171020
  11. CYTARABINE SANDOZ [Suspect]
     Active Substance: CYTARABINE
     Indication: B-CELL LYMPHOMA
     Route: 037
     Dates: start: 20170805, end: 20171003

REACTIONS (1)
  - Cardiomyopathy [Recovering/Resolving]

NARRATIVE: CASE EVENT DATE: 20171115
